FAERS Safety Report 11282332 (Version 1)
Quarter: 2015Q3

REPORT INFORMATION
  Report Type: Report from Study
  Country: DE (occurrence: DE)
  Receive Date: 20150720
  Receipt Date: 20150720
  Transmission Date: 20151125
  Serious: Yes (Hospitalization)
  Sender: FDA-Public Use
  Company Number: DE-ROCHE-1588679

PATIENT
  Age: 66 Year
  Sex: Male
  Weight: 65 kg

DRUGS (5)
  1. CISPLATIN. [Suspect]
     Active Substance: CISPLATIN
     Indication: DIFFUSE LARGE B-CELL LYMPHOMA
     Dosage: LAST DOSE PRIOR TO SAE: 13/MAR/2015.
     Route: 042
     Dates: start: 20150124
  2. RITUXIMAB [Suspect]
     Active Substance: RITUXIMAB
     Indication: DIFFUSE LARGE B-CELL LYMPHOMA REFRACTORY
     Dosage: LAST DOSE PRIOR TO SAE: 12/MAR/2015
     Route: 042
     Dates: start: 20150123
  3. TEMSIROLIMUS [Suspect]
     Active Substance: TEMSIROLIMUS
     Indication: DIFFUSE LARGE B-CELL LYMPHOMA
     Dosage: 25 MG PER INFUSION.?CYCLIC, EACH CYCLE ON DAY 1 AND DAY 8.?LAST DOSE PRIOR TO SAE: 18/MAR/2015
     Route: 042
     Dates: start: 20150127
  4. DEXAMETHASONE. [Suspect]
     Active Substance: DEXAMETHASONE
     Indication: DIFFUSE LARGE B-CELL LYMPHOMA
     Dosage: LAST DOSE PRIOR TO SAE: 15/MAR/2015.
     Route: 042
     Dates: start: 20150124
  5. CYTARABINE. [Suspect]
     Active Substance: CYTARABINE
     Indication: DIFFUSE LARGE B-CELL LYMPHOMA
     Dosage: LAST DOSE PRIOR TO SAE: 14/MAR/2015.
     Route: 042
     Dates: start: 20150125

REACTIONS (1)
  - Epistaxis [Recovered/Resolved]

NARRATIVE: CASE EVENT DATE: 20150323
